FAERS Safety Report 4539637-8 (Version None)
Quarter: 2004Q4

REPORT INFORMATION
  Report Type: 
  Country: None (occurrence: None)
  Receive Date: 20041228
  Receipt Date: 20031015
  Transmission Date: 20050328
  Serious: Yes (Disabling)
  Sender: FDA-Public Use
  Company Number: US-MERCK-0310USA02248

PATIENT
  Age: 54 Year
  Sex: Female
  Weight: 68 kg

DRUGS (4)
  1. FOSAMAX [Suspect]
     Indication: OSTEOPOROSIS
     Route: 048
     Dates: end: 20030101
  2. FOSAMAX [Suspect]
     Route: 048
     Dates: start: 19970101
  3. CALCIUM CARBONATE [Concomitant]
     Indication: OSTEOPOROSIS
     Route: 048
     Dates: start: 19970101
  4. VITAMIN D (UNSPECIFIED) [Concomitant]
     Route: 048
     Dates: start: 19970101

REACTIONS (7)
  - BONE DISORDER [None]
  - BONE FORMATION DECREASED [None]
  - FRACTURE DELAYED UNION [None]
  - FRACTURED SACRUM [None]
  - GROIN PAIN [None]
  - LOW TURNOVER OSTEOPATHY [None]
  - PUBIC RAMI FRACTURE [None]
